FAERS Safety Report 5876535-1 (Version None)
Quarter: 2008Q3

REPORT INFORMATION
  Report Type: 
  Country: None (occurrence: None)
  Receive Date: 20080910
  Receipt Date: 20080910
  Transmission Date: 20090109
  Serious: Yes (Other)
  Sender: FDA-Public Use
  Company Number: A0746766A

PATIENT
  Age: 46 Year
  Weight: 118 kg

DRUGS (1)
  1. ALLI [Suspect]
     Route: 048

REACTIONS (1)
  - HYPOTHYROIDISM [None]
